FAERS Safety Report 10469268 (Version 1)
Quarter: 2014Q3

REPORT INFORMATION
  Report Type: Spontaneous
  Country: US (occurrence: None)
  Receive Date: 20140903
  Receipt Date: 20140903
  Transmission Date: 20150326
  Serious: Yes (Hospitalization)
  Sender: FDA-Public Use
  Company Number: 2013-002821

PATIENT
  Age: 65 Year
  Sex: Female

DRUGS (8)
  1. PREDNISONE. [Concomitant]
     Active Substance: PREDNISONE
  2. INSULIN [Concomitant]
     Active Substance: INSULIN NOS
  3. ASACOL HD [Suspect]
     Active Substance: MESALAMINE
     Indication: COLITIS ULCERATIVE
     Dates: end: 201308
  4. DIAZEPAM. [Concomitant]
     Active Substance: DIAZEPAM
  5. GLYBURIDE (GLIBENCLAMIDE) [Concomitant]
     Active Substance: GLYBURIDE
  6. BUTALBITAL [Concomitant]
     Active Substance: BUTALBITAL
  7. DELZICOL [Suspect]
     Active Substance: MESALAMINE
     Indication: COLITIS ULCERATIVE
     Dosage: NK, UNK, UNKNOWN
     Dates: start: 20130829
  8. MERCAPTOPURINE. [Concomitant]
     Active Substance: MERCAPTOPURINE

REACTIONS (6)
  - Abdominal pain [None]
  - Weight decreased [None]
  - Drug ineffective [None]
  - Diarrhoea haemorrhagic [None]
  - Eructation [None]
  - Colitis ulcerative [None]

NARRATIVE: CASE EVENT DATE: 2010
